FAERS Safety Report 5094872-8 (Version None)
Quarter: 2006Q3

REPORT INFORMATION
  Report Type: 
  Country: None (occurrence: None)
  Receive Date: 20060901
  Receipt Date: 20060509
  Transmission Date: 20061208
  Serious: Yes (Hospitalization)
  Sender: FDA-Public Use
  Company Number: PHBS2006AT07236

PATIENT
  Age: 69 Year
  Sex: Female

DRUGS (3)
  1. ZOMETA [Suspect]
     Indication: MULTIPLE MYELOMA
     Route: 065
  2. ERYPO [Concomitant]
     Dosage: 10000 IU, QW3
  3. AREDIA [Suspect]
     Indication: MULTIPLE MYELOMA
     Route: 065

REACTIONS (4)
  - BONE TRIMMING [None]
  - OSTEONECROSIS [None]
  - SEQUESTRECTOMY [None]
  - SURGERY [None]
